FAERS Safety Report 4595418-0 (Version None)
Quarter: 2005Q1

REPORT INFORMATION
  Report Type: 
  Country: None (occurrence: None)
  Receive Date: 20050224
  Receipt Date: 20050204
  Transmission Date: 20050727
  Serious: Yes (Hospitalization)
  Sender: FDA-Public Use
  Company Number: US_990421369

PATIENT
  Age: 59 Year
  Sex: Female
  Weight: 87 kg

DRUGS (12)
  1. REGULAR PURIFIED PORK INSULIN [Suspect]
     Indication: DIABETES MELLITUS
  2. NPH PURIFIED PORK ISOPHANE INSULIN [Suspect]
     Indication: DIABETES MELLITUS
     Dosage: 20 U DAY
  3. HUMULIN 50/50 [Suspect]
     Indication: DIABETES MELLITUS
     Dates: end: 19980101
  4. NOVOLIN NPH (INSULIN HUMAN INJECTION, ISOPHANE) [Concomitant]
  5. NOVOLIN R [Concomitant]
  6. RELAFEN [Concomitant]
  7. NEURONTIN (GABAPENTIN PFIZER) [Concomitant]
  8. WELLBUTRIN [Concomitant]
  9. TRENTAL [Concomitant]
  10. DEXADEM [Concomitant]
  11. TRAZADONE (TRAZODONE) [Concomitant]
  12. ULTRAM [Concomitant]

REACTIONS (9)
  - AMNESIA [None]
  - BLOOD GLUCOSE FLUCTUATION [None]
  - CARDIAC FAILURE CONGESTIVE [None]
  - CONNECTIVE TISSUE DISORDER [None]
  - ERYTHEMA [None]
  - INTERVERTEBRAL DISC DEGENERATION [None]
  - MENTAL DISORDER [None]
  - MYOCARDIAL INFARCTION [None]
  - NEUROPATHY [None]
